FAERS Safety Report 5105714-6 (Version None)
Quarter: 2006Q3

REPORT INFORMATION
  Report Type: 
  Country: None (occurrence: None)
  Receive Date: 20060915
  Receipt Date: 20060821
  Transmission Date: 20061208
  Serious: Yes (Other)
  Sender: FDA-Public Use
  Company Number: US-AMGEN-US190781

PATIENT
  Sex: Female
  Weight: 61.7 kg

DRUGS (7)
  1. ENBREL [Suspect]
     Indication: RHEUMATOID ARTHRITIS
     Route: 058
     Dates: start: 19991206
  2. SULINDAC [Concomitant]
  3. DIOVAN [Concomitant]
  4. ACTONEL [Concomitant]
  5. ACIPHEX [Concomitant]
  6. PAXIL [Concomitant]
  7. VITAMIN D [Concomitant]

REACTIONS (13)
  - ARRHYTHMIA [None]
  - CARDIAC MURMUR [None]
  - COLITIS [None]
  - CORONARY ARTERY DISEASE [None]
  - COUGH [None]
  - EOSINOPHIL COUNT INCREASED [None]
  - HYPERTENSION [None]
  - INJECTION SITE REACTION [None]
  - MALIGNANT MELANOMA [None]
  - OSTEOPENIA [None]
  - OSTEOPOROSIS [None]
  - PULMONARY MASS [None]
  - RHINITIS ALLERGIC [None]
